FAERS Safety Report 6507055-9 (Version None)
Quarter: 2009Q4

REPORT INFORMATION
  Report Type: 
  Country: None (occurrence: None)
  Receive Date: 20091221
  Receipt Date: 20091208
  Transmission Date: 20100525
  Serious: Yes (Disabling, Other)
  Sender: FDA-Public Use
  Company Number: PHHY2009JP54379

PATIENT
  Sex: Female
  Weight: 40 kg

DRUGS (6)
  1. COMTAN CMT+TAB [Suspect]
     Indication: DRUG EFFECT DECREASED
     Dosage: 100 MG, UNK
     Route: 048
     Dates: start: 20090306, end: 20090318
  2. COMTAN CMT+TAB [Suspect]
     Dosage: 200 MG, UNK
     Route: 048
     Dates: start: 20090319
  3. CARBIDOPA AND LEVODOPA [Concomitant]
     Indication: PARKINSON'S DISEASE
     Dosage: 100 MG, UNK
     Route: 048
  4. CARBIDOPA AND LEVODOPA [Concomitant]
     Dosage: 200 MG, UNK
     Route: 048
  5. PRAMIPEXOLE DIHYDROCHLORIDE [Concomitant]
     Indication: PARKINSON'S DISEASE
     Dosage: 5 MG, UNK
     Route: 048
     Dates: start: 20060425, end: 20090305
  6. SELEGILINE HYDROCHLORIDE [Concomitant]
     Indication: PARKINSON'S DISEASE
     Dosage: 2.5 MG, UNK
     Route: 048
     Dates: start: 20090607

REACTIONS (3)
  - BLOOD ALKALINE PHOSPHATASE INCREASED [None]
  - BLOOD UREA INCREASED [None]
  - GASTRIC MUCOSAL LESION [None]
